FAERS Safety Report 12653909 (Version 3)
Quarter: 2016Q3

REPORT INFORMATION
  Report Type: Spontaneous
  Country: GB (occurrence: GB)
  Receive Date: 20160816
  Receipt Date: 20160910
  Transmission Date: 20161109
  Serious: Yes (Other)
  Sender: FDA-Public Use
  Company Number: GB-AMGEN-GBRSP2016105761

PATIENT
  Age: 58 Year
  Sex: Female

DRUGS (1)
  1. ENBREL [Suspect]
     Active Substance: ETANERCEPT
     Indication: PRODUCT USED FOR UNKNOWN INDICATION
     Dosage: 50 MG, WEEKLY
     Route: 058

REACTIONS (14)
  - Nausea [Unknown]
  - Mouth ulceration [Unknown]
  - Glossodynia [Recovering/Resolving]
  - Increased tendency to bruise [Unknown]
  - Mass [Unknown]
  - Discomfort [Unknown]
  - Colitis ulcerative [Unknown]
  - Depressed mood [Unknown]
  - Abdominal distension [Unknown]
  - Cold sweat [Unknown]
  - Hyperhidrosis [Recovering/Resolving]
  - Oral pain [Recovering/Resolving]
  - Pruritus [Unknown]
  - Drug ineffective [Unknown]
